FAERS Safety Report 23512282 (Version 1)
Quarter: 2024Q1

REPORT INFORMATION
  Report Type: Spontaneous
  Country: US (occurrence: US)
  Receive Date: 20240212
  Receipt Date: 20240212
  Transmission Date: 20240410
  Serious: Yes (Other)
  Sender: FDA-Public Use
  Company Number: US-GLAXOSMITHKLINE-US2024015435

PATIENT

DRUGS (1)
  1. NUCALA [Suspect]
     Active Substance: MEPOLIZUMAB
     Indication: Product used for unknown indication
     Dosage: UNK

REACTIONS (4)
  - Mastectomy [Unknown]
  - COVID-19 [Unknown]
  - Asthma [Unknown]
  - Influenza [Unknown]

NARRATIVE: CASE EVENT DATE: 20240104
